FAERS Safety Report 14486241 (Version 6)
Quarter: 2018Q3

REPORT INFORMATION
  Report Type: Spontaneous
  Country: US (occurrence: US)
  Receive Date: 20180205
  Receipt Date: 20180806
  Transmission Date: 20181010
  Serious: Yes (Other)
  Sender: FDA-Public Use
  Company Number: US-LUNDBECK-DKLU2043586

PATIENT
  Sex: Male

DRUGS (9)
  1. NORTHERA [Suspect]
     Active Substance: DROXIDOPA
     Indication: PARKINSON^S DISEASE
     Dosage: TITRATION SCHEDULE C (COMPLETE)
     Route: 048
     Dates: start: 20180116
  2. NORTHERA [Suspect]
     Active Substance: DROXIDOPA
     Indication: HYPOTENSION
     Route: 048
  3. NORTHERA [Suspect]
     Active Substance: DROXIDOPA
     Route: 048
  4. MIDODRINE [Concomitant]
     Active Substance: MIDODRINE
     Indication: PRODUCT USED FOR UNKNOWN INDICATION
     Route: 065
  5. FLUDROCORTISONE [Concomitant]
     Active Substance: FLUDROCORTISONE
     Indication: PRODUCT USED FOR UNKNOWN INDICATION
     Route: 065
  6. NORTHERA [Suspect]
     Active Substance: DROXIDOPA
     Indication: AUTONOMIC NEUROPATHY
     Route: 048
  7. NORTHERA [Suspect]
     Active Substance: DROXIDOPA
     Route: 048
  8. LEVOTHYROXINE. [Concomitant]
     Active Substance: LEVOTHYROXINE
     Indication: PRODUCT USED FOR UNKNOWN INDICATION
     Route: 065
  9. SINEMET [Concomitant]
     Active Substance: CARBIDOPA\LEVODOPA
     Indication: SLEEP DISORDER
     Route: 065

REACTIONS (15)
  - Tremor [Unknown]
  - Balance disorder [Unknown]
  - Depression [Recovering/Resolving]
  - Loss of consciousness [Unknown]
  - Drug effect delayed [Unknown]
  - Hypoacusis [Recovering/Resolving]
  - Blood pressure fluctuation [Recovering/Resolving]
  - Freezing phenomenon [Unknown]
  - Condition aggravated [Recovering/Resolving]
  - Drug dose omission [Unknown]
  - Thinking abnormal [Recovering/Resolving]
  - Dementia [Recovering/Resolving]
  - Fall [Recovering/Resolving]
  - Blood pressure systolic decreased [Not Recovered/Not Resolved]
  - Drug dose titration not performed [Recovered/Resolved]
